FAERS Safety Report 7150554-X (Version None)
Quarter: 2010Q4

REPORT INFORMATION
  Report Type: 
  Country: None (occurrence: None)
  Receive Date: 20101210
  Receipt Date: 20101207
  Transmission Date: 20110411
  Serious: Yes (Life-Threatening)
  Sender: FDA-Public Use
  Company Number: NL-B.I. PHARMACEUTICALS,INC./RIDGEFIELD-2010-NL-00555NL

PATIENT
  Sex: Female
  Weight: 65 kg

DRUGS (2)
  1. SPIRIVA [Suspect]
     Indication: CHRONIC OBSTRUCTIVE PULMONARY DISEASE
     Dosage: 18 MCG
     Dates: start: 20100904, end: 20101022
  2. LOSARTAN [Concomitant]
     Dates: start: 20070530

REACTIONS (2)
  - BLADDER PROLAPSE [None]
  - URINARY RETENTION [None]
